FAERS Safety Report 16129574 (Version 2)
Quarter: 2019Q2

REPORT INFORMATION
  Report Type: Spontaneous
  Country: US (occurrence: US)
  Receive Date: 20190328
  Receipt Date: 20190611
  Transmission Date: 20190711
  Serious: No
  Sender: FDA-Public Use
  Company Number: US-TEVA-2019-US-1019392

PATIENT
  Sex: Female

DRUGS (1)
  1. TEVA BUPRENORPHINE [Suspect]
     Active Substance: BUPRENORPHINE
     Dosage: FORM STRENGTH 10 MCG/HR
     Route: 062

REACTIONS (6)
  - Muscular weakness [Recovered/Resolved]
  - Nausea [Recovered/Resolved]
  - Product dispensing issue [Unknown]
  - Diarrhoea [Recovered/Resolved]
  - Product adhesion issue [Unknown]
  - Rash [Recovered/Resolved]
